FAERS Safety Report 20889090 (Version 1)
Quarter: 2022Q2

REPORT INFORMATION
  Report Type: Spontaneous
  Country: ES (occurrence: ES)
  Receive Date: 20220530
  Receipt Date: 20220530
  Transmission Date: 20220721
  Serious: Yes (Hospitalization)
  Sender: FDA-Public Use
  Company Number: None

PATIENT
  Age: 52 Year
  Sex: Male

DRUGS (6)
  1. ERTAPENEM SODIUM [Suspect]
     Active Substance: ERTAPENEM SODIUM
     Dosage: 1 GRAM, QD
     Route: 042
     Dates: start: 20220324, end: 20220329
  2. CLOZAPINE [Suspect]
     Active Substance: CLOZAPINE
     Indication: Bipolar I disorder
     Dosage: UNK
     Route: 048
     Dates: start: 20220114, end: 20220418
  3. MEROPENEM [Concomitant]
     Active Substance: MEROPENEM
     Dosage: UNK
     Route: 042
     Dates: start: 20220228, end: 20220309
  4. TAMSULOSIN HYDROCHLORIDE [Concomitant]
     Active Substance: TAMSULOSIN HYDROCHLORIDE
     Indication: Urinary retention
     Dosage: 0.4 MILLIGRAM, QD
     Route: 048
     Dates: start: 20220321, end: 20220326
  5. LEVOFLOXACIN [Concomitant]
     Active Substance: LEVOFLOXACIN
     Dosage: 500 MILLIGRAM, QD
     Route: 048
     Dates: start: 20220323, end: 20220324
  6. ABILIFY MAINTENA [Concomitant]
     Active Substance: ARIPIPRAZOLE
     Indication: Bipolar I disorder
     Dosage: 400 MILLIGRAM, QM
     Route: 030
     Dates: start: 20210528, end: 20220301

REACTIONS (3)
  - Tubulointerstitial nephritis [Recovering/Resolving]
  - Eczema asteatotic [Recovered/Resolved]
  - Eosinophilia [Recovered/Resolved]

NARRATIVE: CASE EVENT DATE: 20220405
